FAERS Safety Report 6195244-5 (Version None)
Quarter: 2009Q2

REPORT INFORMATION
  Report Type: 
  Country: None (occurrence: None)
  Receive Date: 20090519
  Receipt Date: 20090511
  Transmission Date: 20091009
  Serious: Yes (Death, Hospitalization)
  Sender: FDA-Public Use
  Company Number: GB-ELI_LILLY_AND_COMPANY-GB200905002027

PATIENT
  Age: 56 Year
  Sex: Male
  Weight: 118.2 kg

DRUGS (4)
  1. BYETTA [Suspect]
     Dosage: 5 UG, 2/D
     Route: 065
     Dates: start: 20080513
  2. BYETTA [Suspect]
     Dosage: 10 UG, 2/D
     Route: 065
     Dates: start: 20080612
  3. METFORMIN HCL [Concomitant]
     Dosage: 3 D/F, OTHER A DAY
  4. GLICLAZIDE [Concomitant]
     Dosage: 320 D/F, OTHER PER  DAY

REACTIONS (5)
  - DIARRHOEA [None]
  - FLUID IMBALANCE [None]
  - PNEUMONIA [None]
  - RENAL IMPAIRMENT [None]
  - WEIGHT DECREASED [None]
